FAERS Safety Report 8485692-2 (Version None)
Quarter: 2012Q3

REPORT INFORMATION
  Report Type: 
  Country: None (occurrence: None)
  Receive Date: 20120703
  Receipt Date: 20120629
  Transmission Date: 20120928
  Serious: No
  Sender: FDA-Public Use
  Company Number: US-PFIZER INC-2012156991

PATIENT
  Sex: Female
  Weight: 63 kg

DRUGS (3)
  1. XANAX [Suspect]
     Indication: PANIC ATTACK
     Dosage: AS NEEDED
  2. PREMPRO [Suspect]
     Indication: MENOPAUSAL SYMPTOMS
     Dosage: 1 DF, 1X/DAY
     Route: 048
     Dates: start: 20120625
  3. AMBIEN [Concomitant]
     Indication: INSOMNIA
     Dosage: UNK

REACTIONS (2)
  - HYPOAESTHESIA [None]
  - DRUG DOSE OMISSION [None]
